FAERS Safety Report 4589764-4 (Version None)
Quarter: 2005Q1

REPORT INFORMATION
  Report Type: 
  Country: None (occurrence: None)
  Receive Date: 20050223
  Receipt Date: 20050211
  Transmission Date: 20050727
  Serious: Yes (Hospitalization)
  Sender: FDA-Public Use
  Company Number: IT-BRISTOL-MYERS SQUIBB COMPANY-12859468

PATIENT
  Age: 67 Year
  Sex: Female
  Weight: 84 kg

DRUGS (5)
  1. PACLITAXEL [Suspect]
     Route: 042
  2. ADRIAMYCIN PFS [Suspect]
     Route: 042
  3. TRASTUZUMAB [Suspect]
     Route: 042
  4. ACESISTEM [Concomitant]
     Dosage: TOTAL DAILY DOSE:  20/12.5 MILLIGRAMS
     Dates: start: 19990101
  5. DILATREND [Concomitant]
     Dates: start: 19990101

REACTIONS (1)
  - FEBRILE NEUTROPENIA [None]
